FAERS Safety Report 21622812 (Version 1)
Quarter: 2022Q4

REPORT INFORMATION
  Report Type: Report from Study
  Country: US (occurrence: US)
  Receive Date: 20221121
  Receipt Date: 20221121
  Transmission Date: 20230113
  Serious: Yes (Other)
  Sender: FDA-Public Use
  Company Number: US-BIOVITRUM-2022US09101

PATIENT
  Age: 11 Year
  Sex: Female

DRUGS (2)
  1. KINERET [Suspect]
     Active Substance: ANAKINRA
     Indication: Juvenile idiopathic arthritis
     Dates: start: 20220325
  2. KINERET [Suspect]
     Active Substance: ANAKINRA
     Dates: start: 20220325

REACTIONS (8)
  - Juvenile idiopathic arthritis [Unknown]
  - Illness [Unknown]
  - Influenza [Unknown]
  - COVID-19 [Unknown]
  - Neutrophil count decreased [Recovered/Resolved]
  - Drug ineffective [Unknown]
  - Product dose omission issue [Unknown]
  - Off label use [Unknown]

NARRATIVE: CASE EVENT DATE: 20220325
